FAERS Safety Report 8515002-3 (Version None)
Quarter: 2012Q3

REPORT INFORMATION
  Report Type: 
  Country: None (occurrence: None)
  Receive Date: 20120717
  Receipt Date: 20120705
  Transmission Date: 20120928
  Serious: Yes (Hospitalization)
  Sender: FDA-Public Use
  Company Number: FR-CELGENEUS-056-50794-12070540

PATIENT
  Age: 71 Year
  Sex: Male

DRUGS (5)
  1. DIAMICRON [Concomitant]
     Route: 065
  2. BISOPROLOL FUMARATE [Concomitant]
     Route: 065
  3. VIDAZA [Suspect]
     Route: 058
     Dates: start: 20120220
  4. RAMIPRIL [Suspect]
     Route: 048
     Dates: start: 20120128, end: 20120302
  5. MINISINTROM [Concomitant]
     Indication: ATRIAL FIBRILLATION
     Route: 065

REACTIONS (2)
  - VASCULAR PURPURA [None]
  - THROMBOCYTOPENIA [None]
